FAERS Safety Report 10218520 (Version 1)
Quarter: 2014Q2

REPORT INFORMATION
  Report Type: Spontaneous
  Country: JP (occurrence: JP)
  Receive Date: 20140605
  Receipt Date: 20140605
  Transmission Date: 20141212
  Serious: Yes (Other)
  Sender: FDA-Public Use
  Company Number: JP-PAR PHARMACEUTICAL, INC-2014SCPR009118

PATIENT
  Sex: 0

DRUGS (1)
  1. DONEPEZIL HYDROCHLORIDE [Suspect]
     Indication: DEMENTIA ALZHEIMER^S TYPE
     Dosage: 5 MG, DAILY
     Route: 065

REACTIONS (1)
  - Torticollis [Recovered/Resolved]
